FAERS Safety Report 7433616-9 (Version None)
Quarter: 2011Q2

REPORT INFORMATION
  Report Type: 
  Country: None (occurrence: None)
  Receive Date: 20110422
  Receipt Date: 20110413
  Transmission Date: 20111010
  Serious: Yes (Life-Threatening, Hospitalization, Disabling, Other)
  Sender: FDA-Public Use
  Company Number: JP-SANOFI-AVENTIS-2010SA072981

PATIENT
  Age: 47 Year
  Sex: Male
  Weight: 83 kg

DRUGS (39)
  1. ELPLAT [Suspect]
     Route: 041
     Dates: start: 20090728, end: 20090728
  2. ELPLAT [Suspect]
     Route: 041
     Dates: start: 20101028, end: 20101028
  3. WARFARIN [Concomitant]
     Indication: SUBCLAVIAN VEIN THROMBOSIS
     Route: 048
     Dates: start: 20100413, end: 20100930
  4. ELPLAT [Suspect]
     Indication: RECTAL CANCER
     Route: 041
     Dates: start: 20090629, end: 20090629
  5. KYTRIL [Concomitant]
     Indication: PREMEDICATION
     Route: 041
     Dates: start: 20090629, end: 20090908
  6. GRANISETRON HCL [Concomitant]
     Indication: PREMEDICATION
     Route: 041
     Dates: start: 20100119, end: 20101028
  7. PLETAL [Concomitant]
     Indication: SUBCLAVIAN VEIN THROMBOSIS
     Route: 048
     Dates: start: 20090825, end: 20100412
  8. LOXONIN [Concomitant]
     Indication: PYREXIA
     Dosage: UNK-60 MG
     Route: 048
     Dates: start: 20090908, end: 20100325
  9. PYRINAZIN [Concomitant]
     Indication: PYREXIA
     Route: 048
     Dates: start: 20100601, end: 20100601
  10. ELPLAT [Suspect]
     Route: 041
     Dates: start: 20100119, end: 20100119
  11. DEXAMETHASONE SODIUM PHOSPHATE [Concomitant]
     Route: 041
     Dates: start: 20100119, end: 20101028
  12. CELESTAMINE TAB [Concomitant]
     Indication: RASH
     Route: 048
     Dates: start: 20090715, end: 20100325
  13. INDISETRON [Concomitant]
     Indication: NAUSEA
     Route: 048
     Dates: start: 20090825
  14. ZOMETA [Suspect]
     Indication: RECTAL CANCER
     Route: 041
     Dates: start: 20100914, end: 20101028
  15. MOBIC [Concomitant]
     Route: 048
     Dates: start: 20100511
  16. AVASTIN [Suspect]
     Indication: RECTAL CANCER
     Route: 041
     Dates: start: 20090714, end: 20090714
  17. CALCIUM LEVOFOLINATE [Concomitant]
     Indication: RECTAL CANCER
     Route: 041
     Dates: start: 20090629, end: 20090714
  18. FLUOROURACIL [Concomitant]
     Indication: RECTAL CANCER
     Route: 040
     Dates: start: 20090629, end: 20090714
  19. FLUOROURACIL [Concomitant]
     Route: 041
     Dates: start: 20090629, end: 20090714
  20. FLUOROURACIL [Concomitant]
     Route: 041
     Dates: start: 20090728, end: 20090908
  21. ELPLAT [Suspect]
     Route: 041
     Dates: start: 20100209, end: 20100209
  22. ELPLAT [Suspect]
     Route: 041
     Dates: start: 20101005, end: 20101005
  23. XELODA [Suspect]
     Route: 048
     Dates: start: 20100413, end: 20101010
  24. DEXAMETHASONE SODIUM PHOSPHATE [Concomitant]
     Indication: PREMEDICATION
     Dosage: 8-6.6 MG
     Route: 041
     Dates: start: 20090629, end: 20101028
  25. CELESTAMINE TAB [Concomitant]
     Indication: PYREXIA
     Route: 048
     Dates: start: 20090715, end: 20100325
  26. TAMSULOSIN HYDROCHLORIDE [Concomitant]
     Indication: DYSURIA
     Route: 048
     Dates: start: 20090908, end: 20090921
  27. XELODA [Suspect]
     Route: 048
     Dates: start: 20100209, end: 20100405
  28. AVASTIN [Suspect]
     Route: 041
     Dates: start: 20100413, end: 20100413
  29. CALCIUM LEVOFOLINATE [Concomitant]
     Route: 041
     Dates: start: 20090728, end: 20090908
  30. POLARAMINE [Concomitant]
     Indication: PREMEDICATION
     Route: 041
     Dates: start: 20090714, end: 20101028
  31. PROTECADIN [Concomitant]
     Indication: ABDOMINAL PAIN UPPER
     Route: 048
     Dates: start: 20100119, end: 20101027
  32. ELPLAT [Suspect]
     Route: 041
     Dates: start: 20100413, end: 20100413
  33. XELODA [Suspect]
     Indication: RECTAL CANCER
     Route: 048
     Dates: start: 20100119, end: 20100201
  34. AVASTIN [Suspect]
     Route: 041
     Dates: start: 20101028, end: 20101028
  35. FLUOROURACIL [Concomitant]
     Route: 040
     Dates: start: 20090728, end: 20090908
  36. CELESTAMINE TAB [Concomitant]
     Route: 048
     Dates: start: 20090715, end: 20100325
  37. CELESTAMINE TAB [Concomitant]
     Route: 048
     Dates: start: 20090715, end: 20100325
  38. NERISONA [Concomitant]
     Indication: RASH
     Route: 061
     Dates: start: 20090715
  39. BIFIDOBACTERIUM BIFIDUM/ENTEROCOCCUS FAECIUM [Concomitant]
     Route: 048
     Dates: start: 20100302

REACTIONS (10)
  - BLOOD CREATININE INCREASED [None]
  - THROMBOTIC MICROANGIOPATHY [None]
  - HAEMOLYTIC ANAEMIA [None]
  - PLATELET COUNT DECREASED [None]
  - PYREXIA [None]
  - URTICARIA [None]
  - HAEMATURIA [None]
  - RENAL FAILURE ACUTE [None]
  - DISSEMINATED INTRAVASCULAR COAGULATION [None]
  - THROMBOSIS [None]
